FAERS Safety Report 6177645-4 (Version None)
Quarter: 2009Q2

REPORT INFORMATION
  Report Type: 
  Country: None (occurrence: None)
  Receive Date: 20090501
  Receipt Date: 20090501
  Transmission Date: 20091009
  Serious: Yes (Other)
  Sender: FDA-Public Use
  Company Number: None

PATIENT
  Age: 41 Year
  Sex: Female

DRUGS (1)
  1. TOPAMAX [Suspect]
     Indication: CONVULSION
     Dosage: 50 MG BID PO
     Route: 048
     Dates: start: 20090415, end: 20090420

REACTIONS (3)
  - CONVULSION [None]
  - HEADACHE [None]
  - PRODUCT SUBSTITUTION ISSUE [None]
